FAERS Safety Report 5664519-8 (Version None)
Quarter: 2008Q1

REPORT INFORMATION
  Report Type: 
  Country: None (occurrence: None)
  Receive Date: 20080314
  Receipt Date: 20080307
  Transmission Date: 20080703
  Serious: Yes (Life-Threatening, Hospitalization)
  Sender: FDA-Public Use
  Company Number: D0051711A

PATIENT
  Age: 23 Year
  Sex: Female

DRUGS (9)
  1. VIANI FORTE [Suspect]
     Indication: ASTHMA
     Dosage: 550UG TWICE PER DAY
     Route: 055
     Dates: start: 20061001
  2. SULTANOL [Suspect]
     Indication: ASTHMA
     Dosage: 2.5ML TWICE PER DAY
     Route: 055
  3. NOVOPULMON [Concomitant]
     Indication: ASTHMA
     Route: 055
  4. CICLESONIDE [Concomitant]
     Indication: ASTHMA
     Dosage: 160MG TWICE PER DAY
     Route: 055
  5. BRONCHODILATOR UNSPECIFIED [Concomitant]
     Indication: ASTHMA
     Route: 065
  6. DILTIAZEM [Concomitant]
     Dosage: 120MG TWICE PER DAY
     Route: 048
  7. SINGULAIR [Concomitant]
     Indication: ASTHMA
     Route: 048
  8. OMEPRAZOLE [Concomitant]
     Route: 048
  9. PROCORALAN [Concomitant]
     Route: 048

REACTIONS (8)
  - ASTHMA [None]
  - BRONCHITIS [None]
  - CONDITION AGGRAVATED [None]
  - DRUG INEFFECTIVE [None]
  - DYSPNOEA [None]
  - INFECTION [None]
  - LUNG DISORDER [None]
  - SWELLING FACE [None]
